FAERS Safety Report 8269148-8 (Version None)
Quarter: 2012Q2

REPORT INFORMATION
  Report Type: 
  Country: None (occurrence: None)
  Receive Date: 20120409
  Receipt Date: 20120327
  Transmission Date: 20120825
  Serious: Yes (Hospitalization, Other)
  Sender: FDA-Public Use
  Company Number: NL-TEVA-331482ISR

PATIENT
  Sex: Female

DRUGS (4)
  1. PERINDOPRIL ERBUMINE [Concomitant]
  2. SIMVASTATIN [Concomitant]
  3. COPAXONE [Suspect]
     Indication: MULTIPLE SCLEROSIS
     Dosage: 20 MILLIGRAM;
     Route: 058
  4. ASCAL [Concomitant]

REACTIONS (2)
  - MONOPARESIS [None]
  - STRESS [None]
